FAERS Safety Report 8520795 (Version 4)
Quarter: 2014Q1

REPORT INFORMATION
  Report Type: Spontaneous
  Country: US (occurrence: US)
  Receive Date: 20120419
  Receipt Date: 20140131
  Transmission Date: 20141002
  Serious: Yes (Hospitalization, Disabling)
  Sender: FDA-Public Use
  Company Number: US-ASTRAZENECA-2011SE41574

PATIENT
  Age: 51 Year
  Sex: Female

DRUGS (38)
  1. NEXIUM [Suspect]
     Indication: GASTROOESOPHAGEAL REFLUX DISEASE
     Route: 048
     Dates: start: 200605, end: 201008
  2. NEXIUM [Suspect]
     Indication: GASTROOESOPHAGEAL REFLUX DISEASE
     Route: 048
     Dates: start: 2007, end: 201011
  3. NEXIUM [Suspect]
     Indication: GASTROOESOPHAGEAL REFLUX DISEASE
     Route: 048
     Dates: start: 200906, end: 201011
  4. NEXIUM [Suspect]
     Indication: GASTROOESOPHAGEAL REFLUX DISEASE
     Route: 048
     Dates: start: 20100106
  5. NEXIUM [Suspect]
     Indication: GASTROOESOPHAGEAL REFLUX DISEASE
     Route: 048
     Dates: start: 20100322
  6. PRILOSEC [Suspect]
     Indication: GASTROOESOPHAGEAL REFLUX DISEASE
     Route: 048
     Dates: start: 201002
  7. PRILOSEC [Suspect]
     Indication: GASTROOESOPHAGEAL REFLUX DISEASE
     Route: 048
     Dates: start: 20110516
  8. ACIPHEX [Suspect]
     Indication: GASTROOESOPHAGEAL REFLUX DISEASE
     Route: 065
     Dates: start: 200604
  9. ACIPHEX [Suspect]
     Indication: GASTROOESOPHAGEAL REFLUX DISEASE
     Route: 065
  10. CARAFATE [Suspect]
     Route: 065
  11. PROZAC/ FLUOXETINE HCL [Concomitant]
     Indication: DEPRESSION
  12. PROZAC/ FLUOXETINE HCL [Concomitant]
     Indication: DEPRESSION
     Dates: start: 20100112
  13. EFFEXOR [Concomitant]
     Indication: DEPRESSION
  14. AMBIEN [Concomitant]
     Indication: INSOMNIA
  15. XANAX/ ALPRAZOLAM [Concomitant]
     Indication: ANXIETY
     Dosage: 0.5 MG 3 TIMES FOR 5 DAYS
  16. XANAX/ ALPRAZOLAM [Concomitant]
     Indication: ANXIETY
     Route: 048
     Dates: start: 20100215
  17. POTASSIUM CHLORIDE [Concomitant]
     Indication: BLOOD POTASSIUM DECREASED
  18. CRESTOR [Concomitant]
     Indication: BLOOD CHOLESTEROL
  19. LIPITOR [Concomitant]
     Indication: BLOOD CHOLESTEROL
  20. EXFORGE [Concomitant]
     Indication: HYPERTENSION
     Dosage: 10/320 MG QD
  21. INCLERAL [Concomitant]
     Indication: HYPERTENSION
  22. MICARDIS [Concomitant]
     Indication: HYPERTENSION
  23. ASA [Concomitant]
     Indication: CARDIOVASCULAR DISORDER
  24. ASA [Concomitant]
     Indication: CARDIOVASCULAR DISORDER
  25. HYDROCODONE [Concomitant]
     Indication: PAIN
     Dosage: 18/325 OR EVRY 4 TO 6 HRS
  26. OXYCONTIN [Concomitant]
     Indication: PAIN
     Dosage: 20 MG OR 30 MG BID
  27. NAPROXSYN [Concomitant]
     Indication: PAIN
  28. NAPROXSYN [Concomitant]
     Indication: INFLAMMATION
  29. ULTRAM [Concomitant]
     Indication: PAIN
  30. PHENERGAN [Concomitant]
     Indication: MULTIPLE ALLERGIES
  31. ADIPEX P [Concomitant]
     Indication: WEIGHT DECREASED
  32. LOVAZA [Concomitant]
     Indication: BLOOD CHOLESTEROL INCREASED
  33. NIASPAN [Concomitant]
     Indication: BLOOD CHOLESTEROL INCREASED
  34. BYSTOLIC [Concomitant]
     Indication: HYPERTENSION
  35. LOSARTIN [Concomitant]
     Indication: HYPERTENSION
  36. SINGULAIR [Concomitant]
     Dates: start: 20100105
  37. TRAZADONE [Concomitant]
     Indication: INSOMNIA
     Route: 048
     Dates: start: 20100215
  38. HYDROCODONE/APAP [Concomitant]
     Dosage: 10/325
     Dates: start: 20100414

REACTIONS (15)
  - Lower limb fracture [Unknown]
  - Arthropathy [Unknown]
  - Pneumonia [Unknown]
  - Gallbladder disorder [Unknown]
  - Osteoporosis [Unknown]
  - Multiple fractures [Unknown]
  - Arthritis [Unknown]
  - Calcium deficiency [Unknown]
  - Sarcoidosis [Unknown]
  - Emotional distress [Unknown]
  - Chronic obstructive pulmonary disease [Unknown]
  - Vitamin D deficiency [Unknown]
  - Diabetes mellitus [Unknown]
  - Bone pain [Unknown]
  - Depression [Unknown]
